FAERS Safety Report 6197219-9 (Version None)
Quarter: 2009Q2

REPORT INFORMATION
  Report Type: 
  Country: None (occurrence: None)
  Receive Date: 20090521
  Receipt Date: 20070327
  Transmission Date: 20091009
  Serious: Yes (Hospitalization, Other)
  Sender: FDA-Public Use
  Company Number: US-ASTRAZENECA-2006UW10967

PATIENT
  Age: 44 Year
  Sex: Female

DRUGS (18)
  1. SEROQUEL [Suspect]
     Dosage: 100 MG- 300 MG
     Route: 048
     Dates: start: 20050920
  2. ZYPREXA [Suspect]
     Route: 065
  3. CYMBALTA [Concomitant]
     Route: 065
  4. SOMA [Concomitant]
     Dosage: 300-500 MG
     Route: 048
  5. TORADOL [Concomitant]
     Route: 065
  6. WELLBUTRIN [Concomitant]
     Dosage: 150-300 MG
     Route: 065
  7. COMBIVENT [Concomitant]
     Route: 065
  8. ADVAIR HFA [Concomitant]
     Route: 065
  9. NEXIUM [Concomitant]
     Route: 048
     Dates: start: 20020409
  10. LOVENOX [Concomitant]
     Dosage: 30-40 MG
     Route: 065
  11. EFFEXOR [Concomitant]
     Route: 048
  12. ALINIA [Concomitant]
     Route: 048
  13. XOPENEX [Concomitant]
     Route: 065
  14. RANITIDINE [Concomitant]
     Route: 048
  15. CLONAZEPAM [Concomitant]
     Dosage: 0.5-1 MG
     Route: 065
  16. PROMETHAZINE [Concomitant]
     Route: 065
  17. PREVACID [Concomitant]
     Route: 048
  18. MOBIC [Concomitant]
     Route: 065

REACTIONS (13)
  - ANXIETY [None]
  - BACK PAIN [None]
  - CHEST PAIN [None]
  - DIABETES MELLITUS [None]
  - DIZZINESS [None]
  - DUODENAL ULCER [None]
  - EXCORIATION [None]
  - FAECAL INCONTINENCE [None]
  - GASTROINTESTINAL TRACT ADENOMA [None]
  - HYPOKALAEMIA [None]
  - PANIC ATTACK [None]
  - PARANOIA [None]
  - SUBCUTANEOUS ABSCESS [None]
